FAERS Safety Report 9032122 (Version 1)
Quarter: 2013Q1

REPORT INFORMATION
  Report Type: Report from Study
  Country: CA (occurrence: CA)
  Receive Date: 20130122
  Receipt Date: 20130122
  Transmission Date: 20140127
  Serious: Yes (Other)
  Sender: FDA-Public Use
  Company Number: CA-JNJFOC-20130107179

PATIENT
  Sex: Female

DRUGS (5)
  1. REMICADE [Suspect]
     Indication: COLITIS ULCERATIVE
     Route: 042
  2. REMICADE [Suspect]
     Indication: COLITIS ULCERATIVE
     Dosage: 6TH DOSE
     Route: 042
     Dates: start: 201206
  3. REMICADE [Suspect]
     Indication: COLITIS ULCERATIVE
     Route: 042
     Dates: start: 201209, end: 201209
  4. BENADRYL [Concomitant]
     Indication: PREMEDICATION
     Route: 065
  5. CORTISONE [Concomitant]
     Indication: PREMEDICATION
     Route: 065

REACTIONS (4)
  - Respiratory disorder [Unknown]
  - Infusion related reaction [Unknown]
  - Pharyngeal oedema [Unknown]
  - Throat irritation [Unknown]
